FAERS Safety Report 4756076-5 (Version None)
Quarter: 2005Q3

REPORT INFORMATION
  Report Type: 
  Country: None (occurrence: None)
  Receive Date: 20050829
  Receipt Date: 20050829
  Transmission Date: 20060218
  Serious: No
  Sender: FDA-Public Use
  Company Number: None

PATIENT
  Sex: Male

DRUGS (2)
  1. LOCOID [Suspect]
     Indication: PROPHYLAXIS
     Dosage: APPLY BID UD (QOD ROUTINELY +  BID FOR FLARES)
     Dates: start: 19990501
  2. LOCOID [Suspect]
     Indication: SKIN DISORDER
     Dosage: APPLY BID UD (QOD ROUTINELY +  BID FOR FLARES)
     Dates: start: 19990501

REACTIONS (1)
  - THERAPEUTIC PRODUCT INEFFECTIVE [None]
